FAERS Safety Report 12707813 (Version 2)
Quarter: 2016Q3

REPORT INFORMATION
  Report Type: Spontaneous
  Country: DE (occurrence: DE)
  Receive Date: 20160901
  Receipt Date: 20160913
  Transmission Date: 20161109
  Serious: Yes (Death, Life-Threatening, Hospitalization)
  Sender: FDA-Public Use
  Company Number: DE-SA-2016SA158688

PATIENT
  Age: 38 Year
  Sex: Male
  Weight: 127 kg

DRUGS (5)
  1. SODIUM SELENITE [Concomitant]
     Active Substance: SODIUM SELENITE
     Indication: COLORECTAL CANCER METASTATIC
     Route: 042
     Dates: start: 20160621, end: 20160705
  2. 5-FU [Concomitant]
     Active Substance: FLUOROURACIL
     Indication: COLORECTAL CANCER METASTATIC
     Route: 040
     Dates: start: 20160621, end: 20160621
  3. 5-FU [Concomitant]
     Active Substance: FLUOROURACIL
     Indication: COLORECTAL CANCER METASTATIC
     Route: 041
     Dates: start: 20160621
  4. ZALTRAP [Suspect]
     Active Substance: ZIV-AFLIBERCEPT
     Indication: COLORECTAL CANCER METASTATIC
     Dosage: 25 MG/ML CONCENTRATE FOR INFUSION SOLUTION
     Route: 042
     Dates: start: 20160621, end: 20160705
  5. IRINOTECAN [Concomitant]
     Active Substance: IRINOTECAN
     Indication: COLORECTAL CANCER METASTATIC
     Route: 042
     Dates: start: 20160621, end: 20160705

REACTIONS (6)
  - Stoma complication [Fatal]
  - Large intestine perforation [Fatal]
  - Ileus [Fatal]
  - Neoplasm progression [Fatal]
  - Anuria [Fatal]
  - General physical health deterioration [Fatal]

NARRATIVE: CASE EVENT DATE: 20160728
